FAERS Safety Report 21366466 (Version 1)
Quarter: 2022Q3

REPORT INFORMATION
  Report Type: Spontaneous
  Country: ES (occurrence: ES)
  Receive Date: 20220923
  Receipt Date: 20220923
  Transmission Date: 20221026
  Serious: Yes (Death, Hospitalization, Other)
  Sender: FDA-Public Use
  Company Number: ES-MSNLABS-2022MSNLIT01099

PATIENT

DRUGS (2)
  1. CLOFARABINE [Suspect]
     Active Substance: CLOFARABINE
     Indication: Acute myeloid leukaemia
     Dosage: TWO SALVAGE CYCLES
     Route: 065
     Dates: start: 20210629
  2. FLUDARABINE [Suspect]
     Active Substance: FLUDARABINE PHOSPHATE
     Indication: Acute myeloid leukaemia
     Route: 065
     Dates: start: 20210629

REACTIONS (2)
  - Disease progression [Fatal]
  - Leukaemia cutis [Fatal]
